FAERS Safety Report 18539750 (Version 1)
Quarter: 2020Q4

REPORT INFORMATION
  Report Type: Spontaneous
  Country: US (occurrence: US)
  Receive Date: 20201124
  Receipt Date: 20201124
  Transmission Date: 20210114
  Serious: Yes (Hospitalization, Other)
  Sender: FDA-Public Use
  Company Number: US-BAYER-2020-248054

PATIENT
  Age: 53 Year
  Sex: Female

DRUGS (6)
  1. HEPARIN [Suspect]
     Active Substance: HEPARIN SODIUM
  2. ACETYLSALICYLIC ACID [Suspect]
     Active Substance: ASPIRIN
     Dosage: 325 MG
  3. NITROGLYCERIN. [Suspect]
     Active Substance: NITROGLYCERIN
  4. ALEVE [Suspect]
     Active Substance: NAPROXEN SODIUM
  5. MORPHINE [Suspect]
     Active Substance: MORPHINE
  6. COLCHICINE. [Suspect]
     Active Substance: COLCHICINE

REACTIONS (7)
  - Pulmonary embolism [None]
  - Haemorrhagic cerebral infarction [None]
  - Chest pain [None]
  - Labelled drug-drug interaction medication error [None]
  - Mental status changes [None]
  - Brain abscess [None]
  - Cerebrovascular accident [None]
